FAERS Safety Report 12667590 (Version 2)
Quarter: 2016Q3

REPORT INFORMATION
  Report Type: Report from Study
  Country: CO (occurrence: CO)
  Receive Date: 20160819
  Receipt Date: 20160904
  Transmission Date: 20161109
  Serious: Yes (Hospitalization, Other)
  Sender: FDA-Public Use
  Company Number: PHHY2015CO104849

PATIENT
  Age: 42 Year
  Sex: Male
  Weight: 58 kg

DRUGS (2)
  1. ACETAMINOPHEN. [Concomitant]
     Active Substance: ACETAMINOPHEN
     Indication: PAIN
     Dosage: AS NEEDED
     Route: 048
  2. TASIGNA [Suspect]
     Active Substance: NILOTINIB
     Indication: CHRONIC MYELOID LEUKAEMIA
     Dosage: 2 DF, Q12H (IN THE MORNING AND IN THE NIGHT)
     Route: 048
     Dates: start: 20120101

REACTIONS (17)
  - Bone pain [Not Recovered/Not Resolved]
  - Malaise [Unknown]
  - Headache [Unknown]
  - Weight decreased [Unknown]
  - Blood potassium decreased [Unknown]
  - Anal pruritus [Not Recovered/Not Resolved]
  - Decreased immune responsiveness [Unknown]
  - Diarrhoea [Recovered/Resolved]
  - Vomiting [Recovered/Resolved]
  - Abdominal infection [Unknown]
  - Amoebiasis [Unknown]
  - Pyrexia [Recovered/Resolved]
  - Blood phosphorus decreased [Unknown]
  - Chest pain [Unknown]
  - Chills [Recovered/Resolved]
  - Yellow skin [Unknown]
  - Abdominal pain upper [Not Recovered/Not Resolved]

NARRATIVE: CASE EVENT DATE: 20160329
